FAERS Safety Report 5376344-6 (Version None)
Quarter: 2007Q2

REPORT INFORMATION
  Report Type: 
  Country: None (occurrence: None)
  Receive Date: 20070628
  Receipt Date: 20061114
  Transmission Date: 20071010
  Serious: Yes (Hospitalization)
  Sender: FDA-Public Use
  Company Number: 149843USA

PATIENT
  Age: 72 Year
  Sex: Male

DRUGS (1)
  1. NABUMETONE [Suspect]
     Indication: ARTHRITIS
     Dosage: 1500 MG (750 MG, 2 IN 1 D), ORAL
     Route: 048
     Dates: start: 20061106, end: 20061110

REACTIONS (2)
  - FAECES DISCOLOURED [None]
  - GASTROINTESTINAL ULCER HAEMORRHAGE [None]
